FAERS Safety Report 14145509 (Version 2)
Quarter: 2017Q4

REPORT INFORMATION
  Report Type: Report from Study
  Country: OM (occurrence: OM)
  Receive Date: 20171031
  Receipt Date: 20171106
  Transmission Date: 20180321
  Serious: Yes (Life-Threatening, Other)
  Sender: FDA-Public Use
  Company Number: OM-PFIZER INC-2017467009

PATIENT
  Age: 8 Year
  Sex: Female

DRUGS (2)
  1. VINCRISTINE SULFATE. [Suspect]
     Active Substance: VINCRISTINE SULFATE
     Indication: ACUTE LYMPHOCYTIC LEUKAEMIA
     Dosage: 1.5 MG/M2, UNK (VCR DOSES- 11)
  2. VINCRISTINE SULFATE. [Suspect]
     Active Substance: VINCRISTINE SULFATE
     Dosage: UNK 3 DOSE (WEEK 19 AND 20 AT 50% DOSE. FULL DOSE AT WEEK 25)

REACTIONS (2)
  - Autonomic neuropathy [Recovered/Resolved]
  - Cranial nerve disorder [Recovered/Resolved]
